FAERS Safety Report 21337320 (Version 1)
Quarter: 2022Q3

REPORT INFORMATION
  Report Type: Spontaneous
  Country: SE (occurrence: SE)
  Receive Date: 20220915
  Receipt Date: 20220915
  Transmission Date: 20221026
  Serious: Yes (Hospitalization)
  Sender: FDA-Public Use
  Company Number: SE-MYLANLABS-2022M1093218

PATIENT
  Age: 36 Year
  Sex: Female

DRUGS (11)
  1. KETOPROFEN [Suspect]
     Active Substance: KETOPROFEN
     Indication: Rheumatoid arthritis
     Dosage: 200 MILLIGRAM, QD (UNTIL GESTATIONAL WEEK 20)
     Route: 048
  2. ACETAMINOPHEN [Suspect]
     Active Substance: ACETAMINOPHEN
     Indication: Neck pain
     Dosage: UNK
     Route: 065
  3. ACETAMINOPHEN [Suspect]
     Active Substance: ACETAMINOPHEN
     Indication: Headache
  4. IBUPROFEN [Suspect]
     Active Substance: IBUPROFEN
     Indication: Neck pain
     Dosage: UNK
     Route: 065
  5. IBUPROFEN [Suspect]
     Active Substance: IBUPROFEN
     Indication: Headache
  6. PREDNISOLONE [Suspect]
     Active Substance: PREDNISOLONE
     Indication: Rheumatoid arthritis
     Dosage: 5 MILLIGRAM, QD (UNTIL GESTATIONAL WEEK 20)
     Route: 048
  7. PREDNISOLONE [Suspect]
     Active Substance: PREDNISOLONE
     Dosage: 1 DOSAGE FORM, QD (7.5-10 MG PER OS DAILY)
     Route: 048
  8. NAPROXEN [Suspect]
     Active Substance: NAPROXEN
     Indication: Rheumatoid arthritis
     Dosage: 500 MILLIGRAM, QD (UNTIL GESTATIONAL WEEK 20)
     Route: 048
  9. SUFENTANIL [Suspect]
     Active Substance: SUFENTANIL
     Indication: Epidural anaesthesia
     Dosage: UNK
     Route: 008
  10. NITROUS OXIDE [Suspect]
     Active Substance: NITROUS OXIDE
     Indication: Epidural anaesthesia
     Dosage: UNK
     Route: 065
  11. OXYTOCIN [Suspect]
     Active Substance: OXYTOCIN
     Indication: Labour induction
     Dosage: UNK
     Route: 065

REACTIONS (3)
  - Spinal epidural haematoma [Recovered/Resolved]
  - Drug ineffective [Unknown]
  - Maternal exposure during pregnancy [Recovered/Resolved]
